FAERS Safety Report 7160638-8 (Version None)
Quarter: 2010Q4

REPORT INFORMATION
  Report Type: 
  Country: None (occurrence: None)
  Receive Date: 20101214
  Receipt Date: 20091211
  Transmission Date: 20110411
  Serious: No
  Sender: FDA-Public Use
  Company Number: US-AMGEN-KDL379865

PATIENT

DRUGS (5)
  1. ENBREL [Suspect]
     Indication: PSORIATIC ARTHROPATHY
     Dosage: UNK UNK, UNK
     Dates: start: 20091130
  2. FOLIC ACID [Concomitant]
     Dosage: UNK UNK, UNK
  3. ERGOCALCIFEROL [Concomitant]
     Dosage: UNK UNK, UNK
  4. UNSPECIFIED MEDICATION [Concomitant]
     Dosage: UNK UNK, UNK
  5. METHOTREXATE [Concomitant]
     Dosage: UNK UNK, UNK
     Dates: start: 20090202

REACTIONS (1)
  - INJECTION SITE REACTION [None]
